FAERS Safety Report 20679237 (Version 2)
Quarter: 2022Q2

REPORT INFORMATION
  Report Type: Spontaneous
  Country: US (occurrence: US)
  Receive Date: 20220406
  Receipt Date: 20220419
  Transmission Date: 20220721
  Serious: Yes (Other)
  Sender: FDA-Public Use
  Company Number: US-PFIZER INC-202200475429

PATIENT
  Age: 34 Year
  Sex: Male

DRUGS (4)
  1. XALKORI [Suspect]
     Active Substance: CRIZOTINIB
     Indication: Lung neoplasm malignant
     Dosage: 1 DF, 2X/DAY
     Route: 048
  2. XALKORI [Suspect]
     Active Substance: CRIZOTINIB
     Dosage: 250 MG 2X/DAY (TAKE 1 CAPSULE BY MOUTH TWICE A DAY DO NOT BREAK, CHEW OR OPEN CAPSULES)
     Route: 048
     Dates: start: 20220330
  3. PERCOCET [Concomitant]
     Active Substance: ACETAMINOPHEN\OXYCODONE HYDROCHLORIDE
     Dosage: UNK
  4. ELIQUIS [Concomitant]
     Active Substance: APIXABAN
     Dosage: UNK

REACTIONS (5)
  - Second primary malignancy [Unknown]
  - Neoplasm skin [Unknown]
  - Nausea [Unknown]
  - Pain [Recovered/Resolved]
  - Product dose omission issue [Unknown]
